FAERS Safety Report 6960143-5 (Version None)
Quarter: 2010Q3

REPORT INFORMATION
  Report Type: 
  Country: None (occurrence: None)
  Receive Date: 20100901
  Receipt Date: 20100818
  Transmission Date: 20110219
  Serious: Yes (Hospitalization)
  Sender: FDA-Public Use
  Company Number: DE-CELGENEUS-062-21880-10081741

PATIENT
  Age: 62 Year
  Sex: Female
  Weight: 54 kg

DRUGS (9)
  1. REVLIMID [Suspect]
     Indication: MULTIPLE MYELOMA
     Route: 048
     Dates: start: 20100722, end: 20100811
  2. DEXAMETHASONE [Suspect]
     Indication: PRODUCT USED FOR UNKNOWN INDICATION
     Route: 065
  3. ENALAPRIL MALEATE [Concomitant]
     Route: 065
     Dates: start: 20090101
  4. CARVEDILOL [Concomitant]
     Route: 065
     Dates: start: 20090101
  5. PANTOPRAZOLE SODIUM [Concomitant]
     Indication: PROPHYLAXIS
     Route: 065
     Dates: start: 20100701
  6. FENTANYL CITRATE [Concomitant]
     Indication: PAIN
     Route: 062
     Dates: start: 20091201
  7. CITALOPRAM HYDROBROMIDE [Concomitant]
     Indication: DEPRESSION
     Route: 065
     Dates: start: 20100701
  8. AMPHOTERICIN B [Concomitant]
     Indication: PROPHYLAXIS
     Route: 065
  9. HEPARIN [Concomitant]
     Indication: THROMBOSIS PROPHYLAXIS
     Route: 058

REACTIONS (3)
  - HEMIPARESIS [None]
  - HYPOAESTHESIA [None]
  - PERONEAL NERVE PALSY [None]
